FAERS Safety Report 16857606 (Version 2)
Quarter: 2020Q1

REPORT INFORMATION
  Report Type: Spontaneous
  Country: JP (occurrence: JP)
  Receive Date: 20190926
  Receipt Date: 20200108
  Transmission Date: 20200409
  Serious: Yes (Death)
  Sender: FDA-Public Use
  Company Number: JP-PFIZER INC-2019307520

PATIENT
  Age: 79 Year
  Sex: Male

DRUGS (10)
  1. CELECOX [Suspect]
     Active Substance: CELECOXIB
     Dosage: 100 MG, 2X/DAY
     Route: 048
     Dates: start: 20190621
  2. CALONAL [Concomitant]
     Active Substance: ACETAMINOPHEN
     Dosage: 200 MG, 3X/DAY
     Route: 048
     Dates: start: 20190704
  3. PRAVASTATIN. [Concomitant]
     Active Substance: PRAVASTATIN
     Dosage: 10 MG, 1X/DAY
     Route: 048
     Dates: start: 20190401
  4. PRANLUKAST [Concomitant]
     Active Substance: PRANLUKAST
     Dosage: 225 MG, 2X/DAY
     Route: 048
     Dates: start: 20190401
  5. LYRICA [Suspect]
     Active Substance: PREGABALIN
     Indication: PAIN IN EXTREMITY
  6. XYZAL [Concomitant]
     Active Substance: LEVOCETIRIZINE DIHYDROCHLORIDE
     Dosage: 5 MG, 1X/DAY
     Route: 048
     Dates: start: 20190401
  7. CILNIDIPINE [Concomitant]
     Active Substance: CILNIDIPINE
     Dosage: 10 MG, 2X/DAY
     Route: 048
     Dates: start: 20190401
  8. LYRICA [Suspect]
     Active Substance: PREGABALIN
     Indication: PAIN
     Dosage: 150 MG, DAILY
     Route: 048
     Dates: start: 20190621
  9. CILOSTAZOL. [Concomitant]
     Active Substance: CILOSTAZOL
     Dosage: 100 MG, 2X/DAY
     Route: 048
     Dates: start: 20190401
  10. REBAMIPIDE [Concomitant]
     Active Substance: REBAMIPIDE
     Dosage: 100 MG, 2X/DAY
     Route: 048
     Dates: start: 20190621

REACTIONS (2)
  - Vision blurred [Not Recovered/Not Resolved]
  - Death [Fatal]

NARRATIVE: CASE EVENT DATE: 20190713
